FAERS Safety Report 5503078-7 (Version None)
Quarter: 2007Q4

REPORT INFORMATION
  Report Type: 
  Country: None (occurrence: None)
  Receive Date: 20071031
  Receipt Date: 20071017
  Transmission Date: 20080405
  Serious: Yes (Hospitalization, Other)
  Sender: FDA-Public Use
  Company Number: PL-RANBAXY-2007RR-10666

PATIENT

DRUGS (10)
  1. CIPROFLOXACIN [Suspect]
     Indication: URINARY TRACT INFECTION
     Dosage: 250 MG, BID
  2. AZIMILIDE [Suspect]
     Dosage: 125 MG, QD
  3. FUROSEMIDE [Concomitant]
     Route: 048
  4. FUROSEMIDE [Concomitant]
     Route: 042
  5. SPIRONOLACTONE [Concomitant]
     Dosage: 200 MG, UNK
     Route: 042
  6. SPIRONOLACTONE [Concomitant]
     Dosage: 25 MG, QD
     Route: 048
  7. POTASSIUM CHLORIDE [Concomitant]
  8. MAGNESIUM SULFATE [Concomitant]
  9. METOPROLOL [Concomitant]
     Route: 042
  10. AMIODARONE HCL [Concomitant]
     Indication: ARRHYTHMIA PROPHYLAXIS

REACTIONS (3)
  - DRUG INTERACTION [None]
  - ELECTROCARDIOGRAM QT PROLONGED [None]
  - TORSADE DE POINTES [None]
